FAERS Safety Report 4453785-2 (Version None)
Quarter: 2004Q3

REPORT INFORMATION
  Report Type: 
  Country: None (occurrence: None)
  Receive Date: 20040920
  Receipt Date: 20040824
  Transmission Date: 20050211
  Serious: Yes (Hospitalization)
  Sender: FDA-Public Use
  Company Number: FR-BRISTOL-MYERS SQUIBB COMPANY-12682324

PATIENT
  Age: 76 Year
  Sex: Male

DRUGS (10)
  1. COAPROVEL TABS 300MG/12.5MG [Suspect]
     Indication: HYPERTENSION
     Route: 048
     Dates: end: 20040521
  2. DIGOXIN [Suspect]
     Dosage: DIGOXIN WAS STOPPED ON 21-MAY-2004 AND LATER RESTARTED
     Route: 048
  3. ZOLOFT [Concomitant]
  4. TRIVASTAL [Concomitant]
  5. HYPERIUM [Concomitant]
  6. VALPROATE SODIUM [Concomitant]
  7. CORDARONE [Concomitant]
     Dosage: 1 TABLET DAILY ON EVEN DAYS
  8. NEURONTIN [Concomitant]
  9. AVLOCARDYL [Concomitant]
  10. TIAPRIDAL [Concomitant]
     Dosage: ^1000 MG 1.5 TABLET DAILY^

REACTIONS (4)
  - CARDIOACTIVE DRUG LEVEL INCREASED [None]
  - CONFUSIONAL STATE [None]
  - FALL [None]
  - HYPONATRAEMIA [None]
